FAERS Safety Report 4412980-9 (Version None)
Quarter: 2004Q3

REPORT INFORMATION
  Report Type: 
  Country: None (occurrence: None)
  Receive Date: 20040802
  Receipt Date: 20040206
  Transmission Date: 20050211
  Serious: No
  Sender: FDA-Public Use
  Company Number: US-GLAXOSMITHKLINE-A0497072A

PATIENT
  Age: 4 Week
  Sex: Female

DRUGS (1)
  1. ZANTAC [Suspect]
     Dosage: 60MG TWICE PER DAY
     Route: 048

REACTIONS (4)
  - DECREASED APPETITE [None]
  - DIARRHOEA [None]
  - HEART RATE INCREASED [None]
  - OVERDOSE [None]
